FAERS Safety Report 15490900 (Version 1)
Quarter: 2018Q4

REPORT INFORMATION
  Report Type: Spontaneous
  Country: PL (occurrence: PL)
  Receive Date: 20181012
  Receipt Date: 20181012
  Transmission Date: 20190205
  Serious: Yes (Hospitalization)
  Sender: FDA-Public Use
  Company Number: PL-AUROBINDO-AUR-APL-2018-049887

PATIENT
  Sex: Male
  Weight: 70 kg

DRUGS (1)
  1. OLANZAPINE. [Suspect]
     Active Substance: OLANZAPINE
     Indication: PRODUCT USED FOR UNKNOWN INDICATION
     Dosage: 10 MILLIGRAM, ONCE A DAY
     Route: 065

REACTIONS (3)
  - Psychotic disorder [Unknown]
  - Agitation [Unknown]
  - Aggression [Unknown]
